FAERS Safety Report 21759289 (Version 1)
Quarter: 2022Q4

REPORT INFORMATION
  Report Type: Report from Study
  Country: CA (occurrence: CA)
  Receive Date: 20221221
  Receipt Date: 20221221
  Transmission Date: 20230112
  Serious: Yes (Hospitalization, Other)
  Sender: FDA-Public Use
  Company Number: CA-ABBVIE-4243502

PATIENT
  Sex: Female

DRUGS (1)
  1. HUMIRA [Suspect]
     Active Substance: ADALIMUMAB
     Indication: Crohn^s disease
     Route: 058
     Dates: start: 20210311

REACTIONS (5)
  - Obstruction [Unknown]
  - Abdominal discomfort [Unknown]
  - Unevaluable event [Unknown]
  - Abdominal pain [Unknown]
  - Constipation [Unknown]
